FAERS Safety Report 23688682 (Version 7)
Quarter: 2025Q1

REPORT INFORMATION
  Report Type: Spontaneous
  Country: JP (occurrence: JP)
  Receive Date: 20240329
  Receipt Date: 20250331
  Transmission Date: 20250408
  Serious: Yes (Death, Life-Threatening, Hospitalization)
  Sender: EISAI
  Company Number: JP-Eisai-202315820_LEN-EC_P_1

PATIENT
  Age: 65 Year
  Sex: Female

DRUGS (2)
  1. LENVIMA [Suspect]
     Active Substance: LENVATINIB
     Indication: Endometrial cancer recurrent
     Route: 048
     Dates: start: 20240319, end: 20240326
  2. KEYTRUDA [Concomitant]
     Active Substance: PEMBROLIZUMAB
     Indication: Endometrial cancer recurrent
     Route: 042
     Dates: start: 20240319, end: 20240319

REACTIONS (3)
  - Peritonitis [Not Recovered/Not Resolved]
  - Small intestinal perforation [Fatal]
  - Enterocutaneous fistula [Not Recovered/Not Resolved]

NARRATIVE: CASE EVENT DATE: 20240326
